FAERS Safety Report 4057703 (Version 3)
Quarter: 2013Q4

REPORT INFORMATION
  Report Type: Spontaneous
  Country: US (occurrence: US)
  Receive Date: 20031230
  Receipt Date: 20131014
  Transmission Date: 20140711
  Serious: Yes (Hospitalization)
  Sender: FDA-Public Use
  Company Number: 188741

PATIENT
  Age: 45 Year
  Sex: Female
  Weight: 112 kg

DRUGS (4)
  1. AVONEX [Suspect]
     Indication: MULTIPLE SCLEROSIS
     Route: 030
     Dates: start: 200108
  2. AVONEX [Suspect]
     Indication: MULTIPLE SCLEROSIS
     Route: 030
     Dates: start: 20020812
  3. PAXIL CR [Concomitant]
     Indication: DEPRESSION
  4. DETROL LA [Concomitant]
     Indication: URINARY INCONTINENCE

REACTIONS (1)
  - Intervertebral disc protrusion [Recovered/Resolved with Sequelae]
